FAERS Safety Report 4717234-9 (Version None)
Quarter: 2005Q3

REPORT INFORMATION
  Report Type: 
  Country: None (occurrence: None)
  Receive Date: 20050719
  Receipt Date: 20050512
  Transmission Date: 20060218
  Serious: Yes (Death, Hospitalization)
  Sender: FDA-Public Use
  Company Number: 200514151US

PATIENT
  Sex: Female

DRUGS (13)
  1. AMARYL [Suspect]
     Indication: DIABETES MELLITUS NON-INSULIN-DEPENDENT
     Route: 048
  2. CIPRO [Suspect]
     Indication: URINARY TRACT INFECTION
     Dosage: DOSE: UNK
     Route: 042
     Dates: start: 20050422, end: 20050424
  3. FUROSEMIDE [Concomitant]
     Route: 048
  4. DIGITEK [Concomitant]
     Route: 048
  5. PREDNISONE [Concomitant]
     Route: 048
  6. PRILOSEC [Concomitant]
     Route: 048
  7. ZOLOFT [Concomitant]
     Route: 048
  8. FLOVENT [Concomitant]
     Dosage: DOSE: 110 (2 PUFFS)
  9. MORPHINE SULFATE [Concomitant]
     Route: 048
  10. MICRO-K [Concomitant]
     Dosage: DOSE: 10 (X2)
  11. CARAFATE [Concomitant]
     Route: 048
  12. TRAVATAN [Concomitant]
     Dosage: DOSE: 0.004% ONE DROP OU
  13. ZYPREXA [Concomitant]
     Route: 048

REACTIONS (14)
  - BLOOD ALKALINE PHOSPHATASE INCREASED [None]
  - BLOOD CREATININE INCREASED [None]
  - BLOOD UREA INCREASED [None]
  - CATHETER RELATED COMPLICATION [None]
  - CYSTITIS [None]
  - DECREASED APPETITE [None]
  - DEPRESSED LEVEL OF CONSCIOUSNESS [None]
  - HYPOGLYCAEMIA [None]
  - MALAISE [None]
  - PYREXIA [None]
  - RENAL FAILURE [None]
  - SOCIAL AVOIDANT BEHAVIOUR [None]
  - URINARY TRACT INFECTION [None]
  - WHITE BLOOD CELL COUNT INCREASED [None]
